FAERS Safety Report 6541860-8 (Version None)
Quarter: 2010Q1

REPORT INFORMATION
  Report Type: 
  Country: None (occurrence: None)
  Receive Date: 20100119
  Receipt Date: 20100115
  Transmission Date: 20100710
  Serious: Yes (Death, Hospitalization, Other)
  Sender: FDA-Public Use
  Company Number: PHHY2009GB45321

PATIENT
  Sex: Male

DRUGS (5)
  1. CLOZARIL [Suspect]
     Indication: SCHIZOPHRENIA
     Dosage: 200 MG
     Dates: start: 20040601
  2. CLOZARIL [Suspect]
     Dosage: 200 MG
     Route: 048
     Dates: start: 20041008
  3. CLOZARIL [Suspect]
     Dosage: 200 MG
     Dates: start: 20090701, end: 20091005
  4. ARIPIPRAZOLE [Concomitant]
  5. BENZODIAZEPINES [Concomitant]

REACTIONS (9)
  - ARRHYTHMIA [None]
  - CARDIAC DEATH [None]
  - CIRCULATORY COLLAPSE [None]
  - CONDUCTION DISORDER [None]
  - DIZZINESS [None]
  - FALL [None]
  - PSYCHOTIC DISORDER [None]
  - SEDATION [None]
  - SINUS TACHYCARDIA [None]
